FAERS Safety Report 8828890 (Version 1)
Quarter: 2012Q4

REPORT INFORMATION
  Report Type: 
  Country: BR (occurrence: BR)
  Receive Date: 20121009
  Receipt Date: 20121009
  Transmission Date: 20130627
  Serious: Yes (Other)
  Sender: FDA-Public Use
  Company Number: BR-AMGEN-BRASP2012063548

PATIENT
  Age: 37 Year
  Sex: Female
  Weight: 68 kg

DRUGS (4)
  1. ETANERCEPT [Suspect]
     Indication: RHEUMATOID ARTHRITIS
     Dosage: 50 mg, once weekly
     Route: 058
     Dates: start: 201203
  2. METHOTREXATE [Concomitant]
     Dosage: strength 5 mg
  3. PREDNISONE [Concomitant]
     Dosage: strength 20 mg
  4. XEFO [Concomitant]
     Indication: INFLAMMATION
     Dosage: strength 8mg

REACTIONS (3)
  - Pain [Not Recovered/Not Resolved]
  - Hand deformity [Not Recovered/Not Resolved]
  - Injection site discomfort [Unknown]
